FAERS Safety Report 9202465 (Version 2)
Quarter: 2013Q2

REPORT INFORMATION
  Report Type: Spontaneous
  Country: US (occurrence: US)
  Receive Date: 20130401
  Receipt Date: 20130626
  Transmission Date: 20140414
  Serious: Yes (Hospitalization)
  Sender: FDA-Public Use
  Company Number: US-ASTRAZENECA-2013SE19502

PATIENT
  Age: 4 Week
  Sex: Male
  Weight: 2.2 kg

DRUGS (2)
  1. SYNAGIS [Suspect]
     Dosage: 50 MG/0.5 ML, 45 MG/KG ONCE A MONTH
     Route: 030
     Dates: start: 20130221
  2. POLY-VI-SOL-DRO/IRON [Concomitant]

REACTIONS (1)
  - Gastrooesophageal reflux disease [Recovering/Resolving]
